FAERS Safety Report 5336989-6 (Version None)
Quarter: 2007Q2

REPORT INFORMATION
  Report Type: 
  Country: None (occurrence: None)
  Receive Date: 20070529
  Receipt Date: 20070522
  Transmission Date: 20071010
  Serious: Yes (Hospitalization, Other)
  Sender: FDA-Public Use
  Company Number: US-AMGEN-US211241

PATIENT
  Sex: Male
  Weight: 82.2 kg

DRUGS (22)
  1. ARANESP [Suspect]
     Indication: RENAL FAILURE CHRONIC
     Route: 042
     Dates: start: 20060111, end: 20070221
  2. FOLIC ACID [Concomitant]
  3. VITAMIN B [Concomitant]
  4. PLAVIX [Concomitant]
  5. METOPROLOL SUCCINATE [Concomitant]
  6. INSULIN [Concomitant]
  7. ALLOPURINOL [Concomitant]
  8. TEMAZEPAM [Concomitant]
  9. LISINOPRIL [Concomitant]
  10. ASPIRIN [Concomitant]
  11. VALSARTAN [Concomitant]
  12. CALCITRIOL [Concomitant]
  13. RENAGEL [Concomitant]
  14. ASCORBIC ACID [Concomitant]
  15. COREG [Concomitant]
  16. PREVACID [Concomitant]
  17. NORVASC [Concomitant]
  18. ZOCOR [Concomitant]
  19. COZAAR [Concomitant]
  20. QUININE SULFATE [Concomitant]
  21. CALCIUM CHLORIDE [Concomitant]
  22. PHOSLO [Concomitant]

REACTIONS (4)
  - ANAEMIA [None]
  - BONE MARROW FAILURE [None]
  - HEPATITIS B ANTIBODY [None]
  - LEUKOCYTOSIS [None]
